FAERS Safety Report 9882374 (Version 2)
Quarter: 2014Q2

REPORT INFORMATION
  Report Type: Spontaneous
  Country: FR (occurrence: FR)
  Receive Date: 20140207
  Receipt Date: 20140616
  Transmission Date: 20141212
  Serious: Yes (Hospitalization)
  Sender: FDA-Public Use
  Company Number: FR-GLAXOSMITHKLINE-B0966050A

PATIENT
  Age: 60 Year
  Sex: Male

DRUGS (3)
  1. HAVRIX ADULT [Suspect]
     Indication: PROPHYLAXIS
     Route: 058
     Dates: start: 20131202, end: 20131202
  2. VALACICLOVIR [Suspect]
     Indication: HERPES OPHTHALMIC
     Dosage: 500MG TWICE PER DAY
     Route: 048
     Dates: start: 201307
  3. LIPUR [Suspect]
     Indication: HYPERCHOLESTEROLAEMIA
     Dosage: 450MG PER DAY
     Route: 048

REACTIONS (7)
  - Pulmonary embolism [Recovered/Resolved]
  - Deep vein thrombosis [Recovered/Resolved]
  - Abdominal pain upper [Recovered/Resolved]
  - Back pain [Recovered/Resolved]
  - Painful respiration [Recovered/Resolved]
  - Dyspnoea [Recovered/Resolved]
  - Haemoptysis [Recovered/Resolved]
